FAERS Safety Report 8081007 (Version 4)
Quarter: 2014Q2

REPORT INFORMATION
  Report Type: Report from Study
  Country: US (occurrence: US)
  Receive Date: 20110809
  Receipt Date: 20140404
  Transmission Date: 20141212
  Serious: Yes (Hospitalization)
  Sender: FDA-Public Use
  Company Number: US-BIOGENIDEC-2011BI028921

PATIENT
  Age: 68 Year
  Sex: Female
  Weight: 48 kg

DRUGS (29)
  1. TYSABRI [Suspect]
     Indication: MULTIPLE SCLEROSIS
     Route: 042
     Dates: start: 20090715
  2. ACETAMINOPHEN [Concomitant]
  3. ALBUTEROL [Concomitant]
  4. ALLANDERM T [Concomitant]
  5. BACLOFEN [Concomitant]
  6. COREG [Concomitant]
  7. DAKIN SOLUTION [Concomitant]
  8. IRON SULFATE [Concomitant]
  9. FLAGYL [Concomitant]
  10. FORTAZ [Concomitant]
  11. LORTAB [Concomitant]
  12. KEPPRA [Concomitant]
  13. LAMICTAL [Concomitant]
  14. LASIX [Concomitant]
  15. LOVENOX [Concomitant]
  16. LYRICA [Concomitant]
  17. REMIFEMIN [Concomitant]
  18. MULTIVITAMIN WITH IRON [Concomitant]
  19. NYSTATIN [Concomitant]
  20. PHENERGAN [Concomitant]
  21. CALCIUM CARBONATE [Concomitant]
  22. VITAMIN B COMPLEX [Concomitant]
  23. VANCOMYCIN [Concomitant]
     Route: 042
  24. VITAMIN C [Concomitant]
  25. XANAX [Concomitant]
  26. ZOLOFT [Concomitant]
     Dates: end: 20110621
  27. CYMBALTA [Concomitant]
     Dates: start: 20110621
  28. AMBIEN CR [Concomitant]
  29. POTASSIUM CHLORIDE [Concomitant]

REACTIONS (4)
  - Sepsis syndrome [Recovered/Resolved]
  - Decubitus ulcer [Recovered/Resolved]
  - Deep vein thrombosis [Recovered/Resolved]
  - Cystitis [Recovered/Resolved]
